FAERS Safety Report 6547587-0 (Version None)
Quarter: 2010Q1

REPORT INFORMATION
  Report Type: 
  Country: None (occurrence: None)
  Receive Date: 20100122
  Receipt Date: 20100112
  Transmission Date: 20100710
  Serious: Yes (Death, Other)
  Sender: FDA-Public Use
  Company Number: GB-PFIZER INC-2007064676

PATIENT
  Age: 70 Year
  Sex: Female

DRUGS (9)
  1. METHYLPREDNISOLONE AND METHYLPREDNISOLONE ACETATE AND METHYLPREDNISOLO [Suspect]
     Indication: T-CELL LYMPHOMA STAGE IV
     Dosage: EVERY 28 DAYS
  2. CISPLATIN [Suspect]
     Indication: T-CELL LYMPHOMA STAGE IV
     Dosage: EVERY 28 DAYS
  3. GEMCITABINE [Suspect]
     Indication: T-CELL LYMPHOMA STAGE IV
     Dosage: 1G/M EVERY 28 DAYS
  4. BLEOMYCIN SULFATE [Concomitant]
  5. CYCLOPHOSPHAMIDE [Concomitant]
  6. ETOPOSIDE [Concomitant]
  7. METHOTREXATE [Concomitant]
  8. PREDNISOLONE [Concomitant]
  9. VINCRISTINE [Concomitant]

REACTIONS (1)
  - NEUTROPENIA [None]
